FAERS Safety Report 18548591 (Version 3)
Quarter: 2021Q2

REPORT INFORMATION
  Report Type: Spontaneous
  Country: US (occurrence: US)
  Receive Date: 20201126
  Receipt Date: 20210416
  Transmission Date: 20210717
  Serious: Yes (Hospitalization)
  Sender: FDA-Public Use
  Company Number: US-SA-2020SA340560

PATIENT
  Age: 35 Year
  Sex: Female

DRUGS (1)
  1. DUPIXENT [Suspect]
     Active Substance: DUPILUMAB
     Indication: NASAL POLYPS
     Dosage: 300 MG, QOW
     Route: 058
     Dates: start: 202010

REACTIONS (7)
  - Surgery [Unknown]
  - Depressed mood [Unknown]
  - Decreased appetite [Unknown]
  - Pruritus [Unknown]
  - Insomnia [Unknown]
  - Musculoskeletal stiffness [Unknown]
  - Pollakiuria [Unknown]

NARRATIVE: CASE EVENT DATE: 2020
